FAERS Safety Report 4553403-9 (Version None)
Quarter: 2005Q1

REPORT INFORMATION
  Report Type: 
  Country: None (occurrence: None)
  Receive Date: 20050112
  Receipt Date: 20041229
  Transmission Date: 20050727
  Serious: Yes (Hospitalization)
  Sender: FDA-Public Use
  Company Number: 200510000BFR

PATIENT
  Age: 49 Year
  Sex: Female

DRUGS (5)
  1. GLUCOR (ACARBOSE) [Suspect]
     Indication: DIABETES MELLITUS NON-INSULIN-DEPENDENT
     Dosage: TID, ORAL
     Route: 048
     Dates: start: 20000101, end: 20041108
  2. DOLIPRANE [Concomitant]
  3. GLUCOPHAGE [Concomitant]
  4. KLIPAL [Concomitant]
  5. HOMEOPATHIC TREATMENT [Concomitant]

REACTIONS (7)
  - CYTOLYTIC HEPATITIS [None]
  - DIZZINESS [None]
  - LIVER DISORDER [None]
  - MALAISE [None]
  - NAUSEA [None]
  - SENSE OF OPPRESSION [None]
  - VIRAL INFECTION [None]
